FAERS Safety Report 8377443-7 (Version None)
Quarter: 2012Q2

REPORT INFORMATION
  Report Type: 
  Country: None (occurrence: None)
  Receive Date: 20120522
  Receipt Date: 20111201
  Transmission Date: 20120825
  Serious: No
  Sender: FDA-Public Use
  Company Number: US-ASTRAZENECA-2011SE73080

PATIENT
  Sex: Male

DRUGS (4)
  1. PREVACID [Concomitant]
  2. ACIPHEX [Concomitant]
  3. PRILOSEC [Suspect]
     Route: 048
  4. NEXIUM [Concomitant]

REACTIONS (2)
  - DRUG INEFFECTIVE [None]
  - PEPTIC ULCER [None]
